FAERS Safety Report 8393833-0 (Version None)
Quarter: 2012Q2

REPORT INFORMATION
  Report Type: 
  Country: None (occurrence: None)
  Receive Date: 20120530
  Receipt Date: 20120524
  Transmission Date: 20120825
  Serious: No
  Sender: FDA-Public Use
  Company Number: US-PFIZER INC-2012126343

PATIENT
  Sex: Female

DRUGS (2)
  1. LYRICA [Suspect]
     Indication: BREAST PAIN
     Dosage: 100 MG, 3X/DAY
     Route: 048
     Dates: start: 20111201
  2. LYRICA [Suspect]
     Dosage: UNK
     Route: 048
     Dates: end: 20120401

REACTIONS (1)
  - ABDOMINAL PAIN UPPER [None]
